FAERS Safety Report 13826752 (Version 1)
Quarter: 2017Q3

REPORT INFORMATION
  Report Type: Spontaneous
  Country: US (occurrence: US)
  Receive Date: 20170802
  Receipt Date: 20170802
  Transmission Date: 20171127
  Serious: No
  Sender: FDA-Public Use
  Company Number: US-ROCHE-645870

PATIENT
  Age: 76 Year
  Sex: Female

DRUGS (1)
  1. BONIVA [Suspect]
     Active Substance: IBANDRONATE SODIUM
     Indication: OSTEOPOROSIS
     Dosage: RECEIVED 1 DOSE.
     Route: 048
     Dates: start: 200906, end: 200906

REACTIONS (1)
  - Cough [Recovered/Resolved]
